FAERS Safety Report 16479569 (Version 3)
Quarter: 2019Q4

REPORT INFORMATION
  Report Type: Report from Study
  Country: US (occurrence: US)
  Receive Date: 20190626
  Receipt Date: 20191003
  Transmission Date: 20200122
  Serious: Yes (Hospitalization)
  Sender: FDA-Public Use
  Company Number: US-BIOGEN-2019BI00754569

PATIENT
  Sex: Male

DRUGS (1)
  1. TECFIDERA [Suspect]
     Active Substance: DIMETHYL FUMARATE
     Indication: MULTIPLE SCLEROSIS
     Dosage: MAINTENANCE DOSE
     Route: 048
     Dates: start: 201906, end: 20190611

REACTIONS (13)
  - Bacterial infection [Recovered/Resolved]
  - Pain [Unknown]
  - Tremor [Recovered/Resolved]
  - Dehydration [Recovered/Resolved]
  - Feeding disorder [Recovered/Resolved]
  - Decreased immune responsiveness [Unknown]
  - Fall [Recovered/Resolved]
  - Diarrhoea [Unknown]
  - Multiple sclerosis relapse [Unknown]
  - Vomiting [Unknown]
  - Blood potassium decreased [Recovered/Resolved]
  - Fatigue [Recovered/Resolved]
  - Pyrexia [Recovered/Resolved]
